FAERS Safety Report 11285076 (Version 5)
Quarter: 2015Q4

REPORT INFORMATION
  Report Type: Report from Study
  Country: FR (occurrence: FR)
  Receive Date: 20150720
  Receipt Date: 20151020
  Transmission Date: 20160304
  Serious: Yes (Hospitalization, Other)
  Sender: FDA-Public Use
  Company Number: FR-GILEAD-2015-0163586

PATIENT
  Age: 75 Year
  Sex: Male
  Weight: 68 kg

DRUGS (15)
  1. RITUXIMAB [Suspect]
     Active Substance: RITUXIMAB
     Indication: NON-HODGKIN^S LYMPHOMA UNSPECIFIED HISTOLOGY INDOLENT
     Dosage: 375 MG/M2, CYCLICAL
     Dates: start: 20150113, end: 20150430
  2. LEDERFOLINE [Concomitant]
     Active Substance: LEUCOVORIN CALCIUM
     Dosage: UNK
     Dates: start: 20150118
  3. BENDAMUSTINE [Suspect]
     Active Substance: BENDAMUSTINE
     Dosage: 30 MG/M2, CYCLICAL
     Route: 042
     Dates: start: 20150206, end: 20150207
  4. LAMALINE [Concomitant]
     Active Substance: ACETAMINOPHEN\CAFFEINE\OPIUM
     Dosage: UNK
     Dates: start: 201411
  5. BACTRIM [Concomitant]
     Active Substance: SULFAMETHOXAZOLE\TRIMETHOPRIM
     Dosage: UNK
     Dates: start: 20150114
  6. TRIFLUCAN [Concomitant]
     Active Substance: FLUCONAZOLE
     Dosage: 100 MG, QD
  7. ZELITREX [Concomitant]
     Active Substance: VALACYCLOVIR HYDROCHLORIDE
     Dosage: UNK
     Dates: start: 20150112
  8. DUPHALAC [Concomitant]
     Active Substance: LACTULOSE
  9. IDELALISIB [Suspect]
     Active Substance: IDELALISIB
     Dosage: 150 MG, BID
     Route: 048
     Dates: start: 201507
  10. TRIFLUCAN [Concomitant]
     Active Substance: FLUCONAZOLE
     Dosage: 50 MG, QD
  11. BENDAMUSTINE [Suspect]
     Active Substance: BENDAMUSTINE
     Indication: NON-HODGKIN^S LYMPHOMA UNSPECIFIED HISTOLOGY INDOLENT
     Dosage: 30 MG/M2, CYCLICAL
     Route: 042
     Dates: start: 20150113, end: 20150701
  12. IDELALISIB [Suspect]
     Active Substance: IDELALISIB
     Indication: NON-HODGKIN^S LYMPHOMA UNSPECIFIED HISTOLOGY INDOLENT
     Dosage: 150 MG, BID
     Route: 048
     Dates: start: 20150113, end: 201507
  13. ESOMEPRAZOLE [Concomitant]
     Active Substance: ESOMEPRAZOLE
     Dosage: UNK
     Dates: start: 20150112
  14. PROZAC [Concomitant]
     Active Substance: FLUOXETINE HYDROCHLORIDE
     Dosage: UNK
     Dates: start: 201505
  15. FLUOXETINE [Concomitant]
     Active Substance: FLUOXETINE HYDROCHLORIDE
     Dosage: UNK
     Dates: start: 201411

REACTIONS (17)
  - Febrile neutropenia [Recovered/Resolved]
  - Alanine aminotransferase increased [None]
  - Eyelid ptosis [None]
  - Weight decreased [None]
  - Chronic obstructive pulmonary disease [None]
  - Back pain [None]
  - Hypersensitivity [None]
  - Asthenia [None]
  - Oesophageal candidiasis [Recovered/Resolved]
  - Eye pain [None]
  - Aspartate aminotransferase increased [None]
  - Dysphagia [None]
  - Cholestasis [None]
  - C-reactive protein increased [None]
  - Cough [None]
  - Blood pressure systolic increased [None]
  - Wheezing [None]

NARRATIVE: CASE EVENT DATE: 20150714
